FAERS Safety Report 7427847-1 (Version None)
Quarter: 2011Q2

REPORT INFORMATION
  Report Type: 
  Country: None (occurrence: None)
  Receive Date: 20110421
  Receipt Date: 20110406
  Transmission Date: 20111010
  Serious: Yes (Hospitalization)
  Sender: FDA-Public Use
  Company Number: US-RANBAXY-2011US-43566

PATIENT
  Age: 75 Year
  Sex: Female

DRUGS (1)
  1. METFFORMIN HYDROCHLORIDE [Suspect]
     Indication: DIABETES MELLITUS
     Dosage: UNK, UNK
     Route: 065

REACTIONS (8)
  - PANCREATITIS [None]
  - CONFUSIONAL STATE [None]
  - HYPOTHERMIA [None]
  - TOXICITY TO VARIOUS AGENTS [None]
  - ACIDOSIS [None]
  - OLIGURIA [None]
  - LACTIC ACIDOSIS [None]
  - HYPOGLYCAEMIA [None]
